FAERS Safety Report 23148269 (Version 1)
Quarter: 2023Q4

REPORT INFORMATION
  Report Type: Spontaneous
  Country: CN (occurrence: CN)
  Receive Date: 20231106
  Receipt Date: 20231106
  Transmission Date: 20240110
  Serious: Yes (Hospitalization, Other)
  Sender: FDA-Public Use
  Company Number: None

PATIENT
  Age: 47 Year
  Sex: Female
  Weight: 62 kg

DRUGS (17)
  1. CYCLOPHOSPHAMIDE [Suspect]
     Active Substance: CYCLOPHOSPHAMIDE
     Indication: Acute lymphocytic leukaemia
     Dosage: 1.2 G, ONE TIME, DILUTED WITH 250 ML OF SODIUM CHLORIDE
     Route: 041
     Dates: start: 20231010, end: 20231010
  2. CYCLOPHOSPHAMIDE [Suspect]
     Active Substance: CYCLOPHOSPHAMIDE
     Indication: Acute leukaemia in remission
  3. CYCLOPHOSPHAMIDE [Suspect]
     Active Substance: CYCLOPHOSPHAMIDE
     Indication: B-cell type acute leukaemia
  4. CYCLOPHOSPHAMIDE [Suspect]
     Active Substance: CYCLOPHOSPHAMIDE
     Indication: Lymphocytic leukaemia
  5. SODIUM CHLORIDE [Suspect]
     Active Substance: SODIUM CHLORIDE
     Indication: Medication dilution
     Dosage: 4 ML, ONE-TIME, USED TO DILUTE 50 MG OF CYTARABINE HYDROCHLORIDE AND 5 MG OF DEXAMETHASONE SODIUM PH
     Route: 037
     Dates: start: 20231009, end: 20231009
  6. SODIUM CHLORIDE [Suspect]
     Active Substance: SODIUM CHLORIDE
     Dosage: 250 ML, ONE-TIME, USED TO DILUTE 1.2 G OF CYCLOPHOSPHAMIDE
     Route: 041
     Dates: start: 20231010, end: 20231010
  7. SODIUM CHLORIDE [Suspect]
     Active Substance: SODIUM CHLORIDE
     Dosage: 500 ML, TWICE A DAY, USED TO DILUTE 100 MG OF CYTARABINE HYDROCHLORIDE
     Route: 041
     Dates: start: 20231010, end: 20231012
  8. SODIUM CHLORIDE [Suspect]
     Active Substance: SODIUM CHLORIDE
     Dosage: 500 ML, TWICE A DAY, USED TO DILUTE 100 MG OF CYTARABINE HYDROCHLORIDE
     Route: 041
     Dates: start: 20231017, end: 20231019
  9. SODIUM CHLORIDE [Suspect]
     Active Substance: SODIUM CHLORIDE
     Dosage: 500 ML, ONE-TIME, USED TO DILUTE 100 MG OF CYTARABINE HYDROCHLORIDE
     Route: 041
     Dates: start: 20231019, end: 20231019
  10. CYTARABINE HYDROCHLORIDE [Suspect]
     Active Substance: CYTARABINE HYDROCHLORIDE
     Indication: Acute lymphocytic leukaemia
     Dosage: 50 MG, ONE-TIME, DILUTED WITH 4 ML OF 0.9% SODIUM CHLORIDE AND  5 MG OF DEXAMETHASONE SODIUM PHOSPHA
     Route: 037
     Dates: start: 20231009, end: 20231009
  11. CYTARABINE HYDROCHLORIDE [Suspect]
     Active Substance: CYTARABINE HYDROCHLORIDE
     Indication: Acute leukaemia in remission
     Dosage: 100 MG, TWICE A DAY, DILUTED WITH 500 ML FO 0.9% SODIUM CHLORIDE
     Route: 041
     Dates: start: 20231010, end: 20231012
  12. CYTARABINE HYDROCHLORIDE [Suspect]
     Active Substance: CYTARABINE HYDROCHLORIDE
     Indication: B-cell type acute leukaemia
     Dosage: 100 MG, TWICE A DAY, DILUTED WITH 500 ML OF 0.9% SODIUM CHLORIDE
     Route: 041
     Dates: start: 20231017, end: 20231019
  13. CYTARABINE HYDROCHLORIDE [Suspect]
     Active Substance: CYTARABINE HYDROCHLORIDE
     Indication: Lymphocytic leukaemia
     Dosage: 100 MG, ONE-TIME, DILUTED WITH 500 ML OF SODIUM CHLORIDE
     Route: 041
     Dates: start: 20231019, end: 20231019
  14. DEXAMETHASONE SODIUM PHOSPHATE [Suspect]
     Active Substance: DEXAMETHASONE SODIUM PHOSPHATE
     Indication: Acute lymphocytic leukaemia
     Dosage: 5 MG, ONE-TIME, DILUTED WITH 50 MG OF CYTARABINE HYDROCHLORIDE AND 4 ML OF 0.9% SODIUM CHLORIDE
     Route: 037
     Dates: start: 20231009, end: 20231009
  15. DEXAMETHASONE SODIUM PHOSPHATE [Suspect]
     Active Substance: DEXAMETHASONE SODIUM PHOSPHATE
     Indication: Acute leukaemia in remission
  16. DEXAMETHASONE SODIUM PHOSPHATE [Suspect]
     Active Substance: DEXAMETHASONE SODIUM PHOSPHATE
     Indication: B-cell type acute leukaemia
  17. DEXAMETHASONE SODIUM PHOSPHATE [Suspect]
     Active Substance: DEXAMETHASONE SODIUM PHOSPHATE
     Indication: Lymphocytic leukaemia

REACTIONS (1)
  - Myelosuppression [Unknown]

NARRATIVE: CASE EVENT DATE: 20231023
